FAERS Safety Report 10220751 (Version 1)
Quarter: 2014Q2

REPORT INFORMATION
  Report Type: Spontaneous
  Country: US (occurrence: US)
  Receive Date: 20140606
  Receipt Date: 20140606
  Transmission Date: 20141212
  Serious: No
  Sender: FDA-Public Use
  Company Number: US-PFIZER INC-2014152636

PATIENT
  Age: 81 Year
  Sex: Female
  Weight: 61.68 kg

DRUGS (7)
  1. LEVOTHYROXINE SODIUM [Suspect]
     Indication: HYPOTHYROIDISM
     Dosage: UNK, DAILY
     Dates: start: 2013, end: 2013
  2. SYNTHROID [Suspect]
     Indication: HYPOTHYROIDISM
     Dosage: UNK, DAILY
     Dates: start: 2013
  3. PLAVIX [Concomitant]
     Dosage: 75 MG, DAILY
  4. DIOVAN (VALSARTAN) [Concomitant]
     Dosage: 40 MG, DAILY
  5. COREG [Concomitant]
     Dosage: 10 MG, DAILY
  6. ASPIRIN [Concomitant]
     Dosage: 81 MG, DAILY
  7. SIMVASTATIN [Concomitant]
     Indication: BLOOD CHOLESTEROL INCREASED
     Dosage: 40 MG, DAILY

REACTIONS (3)
  - Malaise [Unknown]
  - Anxiety [Unknown]
  - Feeling abnormal [Unknown]
